FAERS Safety Report 20878014 (Version 1)
Quarter: 2022Q2

REPORT INFORMATION
  Report Type: Spontaneous
  Country: US (occurrence: US)
  Receive Date: 20220526
  Receipt Date: 20220526
  Transmission Date: 20220721
  Serious: Yes (Hospitalization, Other)
  Sender: FDA-Public Use
  Company Number: US-PFIZER INC-202200486056

PATIENT
  Age: 75 Year
  Sex: Female
  Weight: 70.295 kg

DRUGS (2)
  1. XALKORI [Suspect]
     Active Substance: CRIZOTINIB
     Indication: Lung neoplasm malignant
     Dosage: 250 MG
     Dates: start: 202203
  2. XALKORI [Suspect]
     Active Substance: CRIZOTINIB
     Indication: Malignant neoplasm of spinal cord

REACTIONS (7)
  - Heart rate increased [Unknown]
  - Infection [Unknown]
  - Hepatic enzyme increased [Unknown]
  - Illness [Unknown]
  - Decreased appetite [Unknown]
  - Taste disorder [Unknown]
  - Eating disorder [Unknown]

NARRATIVE: CASE EVENT DATE: 20220301
